FAERS Safety Report 10005362 (Version 1)
Quarter: 2014Q1

REPORT INFORMATION
  Report Type: Spontaneous
  Country: CZ (occurrence: CZ)
  Receive Date: 20140313
  Receipt Date: 20140313
  Transmission Date: 20141002
  Serious: Yes (Other)
  Sender: FDA-Public Use
  Company Number: CZ-JNJFOC-20140302398

PATIENT
  Sex: 0

DRUGS (5)
  1. IBUPROFEN [Suspect]
     Indication: RHEUMATOID ARTHRITIS
     Route: 065
  2. DICLOFENAC [Suspect]
     Indication: RHEUMATOID ARTHRITIS
     Route: 065
  3. KETOPROFEN [Suspect]
     Indication: RHEUMATOID ARTHRITIS
     Route: 065
  4. TIAPROFENIC ACID [Suspect]
     Indication: RHEUMATOID ARTHRITIS
     Route: 065
  5. OXAPROZIN [Suspect]
     Indication: RHEUMATOID ARTHRITIS
     Route: 065

REACTIONS (3)
  - Gastrointestinal disorder [Unknown]
  - Dyspepsia [Unknown]
  - Anaemia [Unknown]
